FAERS Safety Report 10651543 (Version 1)
Quarter: 2014Q4

REPORT INFORMATION
  Report Type: Spontaneous
  Country: US (occurrence: None)
  Receive Date: 20141212
  Receipt Date: 20141212
  Transmission Date: 20150529
  Serious: No
  Sender: FDA-Public Use
  Company Number: None

PATIENT
  Sex: Female
  Weight: 59.3 kg

DRUGS (1)
  1. ALFA 2 INTERFERON 2 B [Suspect]
     Active Substance: INTERFERON ALFA-2B
     Dosage: 640 MU?02/07/0001

REACTIONS (1)
  - Blood phosphorus abnormal [None]
